FAERS Safety Report 9440937 (Version 1)
Quarter: 2013Q3

REPORT INFORMATION
  Report Type: Report from Study
  Country: BR (occurrence: BR)
  Receive Date: 20130805
  Receipt Date: 20130805
  Transmission Date: 20140515
  Serious: Yes (Death, Hospitalization, Other)
  Sender: FDA-Public Use
  Company Number: PHHY2013BR083248

PATIENT
  Age: 78 Year
  Sex: Male

DRUGS (1)
  1. FORASEQ [Suspect]
     Indication: CHRONIC OBSTRUCTIVE PULMONARY DISEASE
     Dosage: 2 DF, QD
     Dates: end: 201202

REACTIONS (7)
  - Metastases to small intestine [Fatal]
  - Rectal haemorrhage [Fatal]
  - Pulmonary oedema [Fatal]
  - Lung neoplasm malignant [Fatal]
  - Respiratory failure [Fatal]
  - Asthenia [Fatal]
  - Respiratory arrest [Fatal]
